FAERS Safety Report 8491177 (Version 3)
Quarter: 2013Q1

REPORT INFORMATION
  Report Type: Spontaneous
  Country: BR (occurrence: BR)
  Receive Date: 20120403
  Receipt Date: 20130131
  Transmission Date: 20140127
  Serious: Yes (Other)
  Sender: FDA-Public Use
  Company Number: BR-PFIZER INC-2012080851

PATIENT
  Age: 67 Year
  Sex: Male
  Weight: 88 kg

DRUGS (8)
  1. SUTENT [Suspect]
     Indication: RENAL CANCER
     Dosage: 1 TABLET OF 50 MG, 1X/DAY
     Route: 048
     Dates: start: 20121105
  2. LANTUS [Concomitant]
     Indication: DIABETES MELLITUS
     Dosage: 14 IU, 1X/DAY
  3. DIOVAN [Concomitant]
     Indication: HYPERTENSION
     Dosage: 320 MG, 1X/DAY
  4. VYTORIN [Concomitant]
     Dosage: 10MG/20MG, 1X/DAY
  5. FUROSEMIDE [Concomitant]
     Dosage: 1 TABLET (UNKNOWN DOSE) DAILY
  6. ENALAPRIL MALEATE [Concomitant]
     Dosage: 10 MG, UNK
  7. OLMETEC [Concomitant]
     Dosage: 40 MG, UNK
  8. INSULIN [Concomitant]
     Dosage: 12 IU, UNK

REACTIONS (7)
  - Nephrolithiasis [Unknown]
  - Blister [Not Recovered/Not Resolved]
  - Blister [Not Recovered/Not Resolved]
  - Rash macular [Not Recovered/Not Resolved]
  - Diarrhoea [Not Recovered/Not Resolved]
  - Hyperkeratosis [Recovering/Resolving]
  - Gait disturbance [Unknown]
